FAERS Safety Report 17040205 (Version 1)
Quarter: 2019Q4

REPORT INFORMATION
  Report Type: Spontaneous
  Country: US (occurrence: US)
  Receive Date: 20191016
  Receipt Date: 20191016
  Transmission Date: 20200122
  Serious: No
  Sender: FDA-Public Use
  Company Number: None

PATIENT
  Sex: Female

DRUGS (1)
  1. COPAXONE [Suspect]
     Active Substance: GLATIRAMER ACETATE
     Indication: MULTIPLE SCLEROSIS
     Route: 058
     Dates: start: 201909

REACTIONS (7)
  - Loss of consciousness [None]
  - Pain [None]
  - Muscle spasms [None]
  - Nausea [None]
  - Vomiting [None]
  - Diarrhoea [None]
  - Asthenia [None]
